FAERS Safety Report 15658600 (Version 6)
Quarter: 2024Q1

REPORT INFORMATION
  Report Type: Spontaneous
  Country: US (occurrence: US)
  Receive Date: 20181126
  Receipt Date: 20240322
  Transmission Date: 20240410
  Serious: Yes (Other)
  Sender: FDA-Public Use
  Company Number: US-PFIZER INC-2018300132

PATIENT
  Age: 62 Year
  Sex: Female

DRUGS (1)
  1. XELJANZ XR [Suspect]
     Active Substance: TOFACITINIB CITRATE
     Indication: Rheumatoid arthritis
     Dosage: 11 MG, DAILY
     Route: 048
     Dates: start: 2018

REACTIONS (6)
  - Limb operation [Unknown]
  - Confusional state [Unknown]
  - Coronavirus infection [Unknown]
  - Therapeutic product effect incomplete [Unknown]
  - Restless legs syndrome [Unknown]
  - Pain in extremity [Unknown]
